FAERS Safety Report 12541890 (Version 3)
Quarter: 2016Q4

REPORT INFORMATION
  Report Type: Spontaneous
  Country: DE (occurrence: DE)
  Receive Date: 20160708
  Receipt Date: 20161019
  Transmission Date: 20170207
  Serious: Yes (Life-Threatening, Hospitalization, Other)
  Sender: FDA-Public Use
  Company Number: DE-MYLANLABS-2016M1027688

PATIENT

DRUGS (1)
  1. AZATHIOPRINE. [Suspect]
     Active Substance: AZATHIOPRINE
     Indication: CROHN^S DISEASE
     Dosage: DAILY DOSE: 3 DF DOSAGE FORM EVERY DAYS
     Route: 048
     Dates: start: 2013, end: 201605

REACTIONS (13)
  - Thrombocytopenia [Unknown]
  - Panic attack [Unknown]
  - Nausea [Unknown]
  - Urinary tract infection [Unknown]
  - Leukopenia [Unknown]
  - Weight decreased [Unknown]
  - Anaemia [Unknown]
  - Iron deficiency anaemia [Unknown]
  - Fatigue [Unknown]
  - Dyspnoea [Unknown]
  - Pancytopenia [Recovered/Resolved]
  - Acute kidney injury [Recovered/Resolved]
  - Epistaxis [Recovered/Resolved]

NARRATIVE: CASE EVENT DATE: 20160516
